FAERS Safety Report 12526910 (Version 1)
Quarter: 2016Q3

REPORT INFORMATION
  Report Type: Spontaneous
  Country: SN (occurrence: SN)
  Receive Date: 20160705
  Receipt Date: 20160705
  Transmission Date: 20161109
  Serious: Yes (Hospitalization)
  Sender: FDA-Public Use
  Company Number: PHHY2016SN085630

PATIENT
  Age: 62 Year
  Sex: Male

DRUGS (1)
  1. EXFORGE [Suspect]
     Active Substance: AMLODIPINE BESYLATE\VALSARTAN
     Indication: HYPERTENSION
     Dosage: 1 DF(AMLODIPINE 10 VALSARTAN 160 OT) , UNK
     Route: 048

REACTIONS (2)
  - Diabetic nephropathy [Not Recovered/Not Resolved]
  - Hypertension [Not Recovered/Not Resolved]
